FAERS Safety Report 20128997 (Version 1)
Quarter: 2021Q4

REPORT INFORMATION
  Report Type: Other
  Country: US (occurrence: None)
  Receive Date: 20211130
  Receipt Date: 20211130
  Transmission Date: 20220304
  Serious: Yes (Hospitalization)
  Sender: FDA-Public Use
  Company Number: US-ROCHE-2960441

PATIENT
  Sex: Female

DRUGS (1)
  1. OCREVUS [Suspect]
     Active Substance: OCRELIZUMAB
     Indication: Primary progressive multiple sclerosis
     Dosage: ONGOING UNKNOWN?DATE OF TREATMENT: 24/JUN/2021, 07/JUL/2021
     Route: 042

REACTIONS (2)
  - Pneumonia [Unknown]
  - Immunosuppression [Unknown]
